FAERS Safety Report 8298813-1 (Version None)
Quarter: 2012Q2

REPORT INFORMATION
  Report Type: 
  Country: None (occurrence: None)
  Receive Date: 20120419
  Receipt Date: 20120413
  Transmission Date: 20120825
  Serious: Yes (Hospitalization, Other)
  Sender: FDA-Public Use
  Company Number: US-ROCHE-791184

PATIENT
  Sex: Male
  Weight: 44.038 kg

DRUGS (4)
  1. ACCUTANE [Suspect]
     Dates: start: 19900101, end: 19910101
  2. ACCUTANE [Suspect]
     Indication: ACNE CYSTIC
     Route: 065
  3. ACCUTANE [Suspect]
     Dates: start: 19980301, end: 19990801
  4. ACCUTANE [Suspect]

REACTIONS (12)
  - INTESTINAL HAEMORRHAGE [None]
  - ANAL ABSCESS [None]
  - COLONIC POLYP [None]
  - INFLAMMATORY BOWEL DISEASE [None]
  - ANAL FISTULA [None]
  - IRRITABLE BOWEL SYNDROME [None]
  - CROHN'S DISEASE [None]
  - EMOTIONAL DISTRESS [None]
  - ANAL FISSURE [None]
  - INTESTINAL OBSTRUCTION [None]
  - CONJUNCTIVITIS [None]
  - COLITIS ULCERATIVE [None]
